FAERS Safety Report 5217000-4 (Version None)
Quarter: 2007Q1

REPORT INFORMATION
  Report Type: 
  Country: None (occurrence: None)
  Receive Date: 20070124
  Receipt Date: 20070114
  Transmission Date: 20070707
  Serious: Yes (Hospitalization)
  Sender: FDA-Public Use
  Company Number: 2007UW00772

PATIENT
  Age: 83 Year
  Sex: Female
  Weight: 65.8 kg

DRUGS (4)
  1. SEROQUEL [Suspect]
     Indication: ABNORMAL BEHAVIOUR
     Route: 048
  2. INSULIN [Concomitant]
  3. HEART MEDICATIONS [Concomitant]
  4. ERYTHROMYCIN [Concomitant]

REACTIONS (10)
  - COMMUNICATION DISORDER [None]
  - DYSARTHRIA [None]
  - DYSPNOEA [None]
  - FEELING ABNORMAL [None]
  - HYPERHIDROSIS [None]
  - ILL-DEFINED DISORDER [None]
  - MENTAL IMPAIRMENT [None]
  - PULSE ABNORMAL [None]
  - TREMOR [None]
  - WHEEZING [None]
